FAERS Safety Report 8445852-3 (Version None)
Quarter: 2012Q2

REPORT INFORMATION
  Report Type: 
  Country: None (occurrence: None)
  Receive Date: 20120618
  Receipt Date: 20120614
  Transmission Date: 20120825
  Serious: Yes (Other)
  Sender: FDA-Public Use
  Company Number: JP-PFIZER INC-2012137671

PATIENT
  Age: 25 Year
  Sex: Female

DRUGS (5)
  1. MUCODYNE [Concomitant]
     Route: 048
  2. ALDACTONE [Suspect]
     Indication: ACNE
     Dosage: 50 MG, DAILY
     Route: 048
  3. CODEINE PHOSPHATE [Concomitant]
     Route: 048
  4. GARENOXACIN MESILATE [Concomitant]
     Route: 048
  5. FLOMOX [Concomitant]
     Route: 048

REACTIONS (3)
  - PULMONARY CONGESTION [None]
  - NASOPHARYNGITIS [None]
  - COUGH [None]
